FAERS Safety Report 8509625-5 (Version None)
Quarter: 2012Q3

REPORT INFORMATION
  Report Type: 
  Country: None (occurrence: None)
  Receive Date: 20120713
  Receipt Date: 20120704
  Transmission Date: 20120928
  Serious: Yes (Life-Threatening, Hospitalization)
  Sender: FDA-Public Use
  Company Number: DE-PURDUE-DEU-2012-0008872

PATIENT
  Age: 48 Year
  Sex: Male
  Weight: 82 kg

DRUGS (4)
  1. AMITRIPTYLINE HCL [Suspect]
     Indication: AMPUTATION STUMP PAIN
     Dosage: 75 MG, DAILY
     Route: 048
     Dates: start: 20111015, end: 20111104
  2. NOVALGIN                           /00169801/ [Suspect]
     Indication: AMPUTATION STUMP PAIN
     Dosage: 4 G, DAILY
     Route: 048
     Dates: start: 20110921, end: 20111103
  3. OXYCODONE HCL [Suspect]
     Indication: AMPUTATION STUMP PAIN
     Dosage: 20 MG, DAILY
     Route: 048
     Dates: start: 20111015, end: 20111104
  4. IBUPROFEN [Suspect]
     Indication: AMPUTATION STUMP PAIN
     Dosage: 1800 MG, DAILY
     Route: 048
     Dates: start: 20110921, end: 20111104

REACTIONS (1)
  - AGRANULOCYTOSIS [None]
